FAERS Safety Report 4464074-4 (Version None)
Quarter: 2004Q3

REPORT INFORMATION
  Report Type: 
  Country: None (occurrence: None)
  Receive Date: 20040930
  Receipt Date: 20040930
  Transmission Date: 20050211
  Serious: No
  Sender: FDA-Public Use
  Company Number: None

PATIENT
  Age: 52 Year
  Sex: Male
  Weight: 133.8111 kg

DRUGS (6)
  1. ZOSYN [Suspect]
     Indication: OSTEOMYELITIS
     Dosage: 3.375G/100ML NS IV Q8H
     Route: 042
     Dates: start: 20040907, end: 20040924
  2. ZOSYN [Suspect]
  3. LIPITOR [Concomitant]
  4. ASPIRIN [Concomitant]
  5. COLACE [Concomitant]
  6. METAMUCIL-2 [Concomitant]

REACTIONS (1)
  - MYALGIA [None]
